FAERS Safety Report 8239461-9 (Version None)
Quarter: 2012Q1

REPORT INFORMATION
  Report Type: 
  Country: None (occurrence: None)
  Receive Date: 20120328
  Receipt Date: 20120319
  Transmission Date: 20120608
  Serious: Yes (Hospitalization)
  Sender: FDA-Public Use
  Company Number: FR-US-EMD SERONO, INC.-7099154

PATIENT
  Sex: Male

DRUGS (5)
  1. ESCITALOPRAM OXALATE [Concomitant]
     Indication: SLEEP DISORDER
  2. ESCITALOPRAM OXALATE [Concomitant]
     Indication: DEPRESSION
     Dates: start: 20091101
  3. AVONEX [Suspect]
     Indication: RELAPSING-REMITTING MULTIPLE SCLEROSIS
     Route: 030
     Dates: start: 20010901, end: 20080701
  4. CLONAZEPAM [Concomitant]
     Indication: PRODUCT USED FOR UNKNOWN INDICATION
  5. REBIF [Suspect]
     Indication: RELAPSING-REMITTING MULTIPLE SCLEROSIS
     Route: 058
     Dates: end: 20110501

REACTIONS (5)
  - VASCULITIS [None]
  - INJECTION SITE REACTION [None]
  - INSOMNIA [None]
  - MUSCLE INJURY [None]
  - ASTHENIA [None]
